FAERS Safety Report 4790128-9 (Version None)
Quarter: 2005Q4

REPORT INFORMATION
  Report Type: 
  Country: None (occurrence: None)
  Receive Date: 20051006
  Receipt Date: 20050927
  Transmission Date: 20060501
  Serious: Yes (Hospitalization)
  Sender: FDA-Public Use
  Company Number: PHBS2005JP14304

PATIENT
  Age: 61 Year
  Sex: Female

DRUGS (3)
  1. GLEEVEC [Suspect]
     Indication: CHRONIC MYELOID LEUKAEMIA
     Route: 048
     Dates: start: 20050920
  2. GASTER [Concomitant]
  3. GLEEVEC [Suspect]
     Dosage: 4 CAP/D
     Route: 048
     Dates: start: 20031225, end: 20050919

REACTIONS (3)
  - COLORECTAL CANCER [None]
  - SURGERY [None]
  - VOMITING [None]
